FAERS Safety Report 4377128-8 (Version None)
Quarter: 2004Q2

REPORT INFORMATION
  Report Type: 
  Country: None (occurrence: None)
  Receive Date: 20040615
  Receipt Date: 20040603
  Transmission Date: 20050107
  Serious: Yes (Death)
  Sender: FDA-Public Use
  Company Number: DE-JNJFOC-20040601330

PATIENT
  Sex: Male

DRUGS (6)
  1. ABCIXIMAB [Suspect]
     Route: 042
  2. ABCIXIMAB [Suspect]
     Indication: ACUTE MYOCARDIAL INFARCTION
     Route: 042
  3. RETEPLASE [Suspect]
     Indication: ACUTE MYOCARDIAL INFARCTION
     Route: 042
  4. ASPIRIN [Concomitant]
  5. HEPARIN [Concomitant]
  6. CLOPIDOGREL BISULFATE [Concomitant]

REACTIONS (2)
  - DRUG INTERACTION [None]
  - ROAD TRAFFIC ACCIDENT [None]
